FAERS Safety Report 8323444-4 (Version None)
Quarter: 2012Q2

REPORT INFORMATION
  Report Type: 
  Country: None (occurrence: None)
  Receive Date: 20120501
  Receipt Date: 20120423
  Transmission Date: 20120825
  Serious: Yes (Other)
  Sender: FDA-Public Use
  Company Number: FR-SP-2012-04483

PATIENT
  Age: 83 Year
  Sex: Male

DRUGS (1)
  1. IMMUCYST [Suspect]
     Indication: BLADDER CANCER
     Route: 065

REACTIONS (4)
  - BACTERIAL TEST [None]
  - PYREXIA [None]
  - COUGH [None]
  - WEIGHT DECREASED [None]
